FAERS Safety Report 10174607 (Version 4)
Quarter: 2015Q2

REPORT INFORMATION
  Report Type: Spontaneous
  Country: US (occurrence: US)
  Receive Date: 20140515
  Receipt Date: 20150626
  Transmission Date: 20150821
  Serious: Yes (Hospitalization, Disabling, Other)
  Sender: FDA-Public Use
  Company Number: US-UCBSA-120839

PATIENT
  Sex: Male
  Weight: 81.63 kg

DRUGS (13)
  1. ZONEGRAM [Concomitant]
     Dosage: 100 MG, 2X/DAY (BID)
  2. EL CARTITINE [Concomitant]
     Dosage: 330 MG, TWO TABS THREE TIMES A DAY
  3. MYLANTA [Concomitant]
     Active Substance: ALUMINUM HYDROXIDE\MAGNESIUM HYDROXIDE\SIMETHICONE
     Dosage: 10 ML, 2X/DAY (BID)
  4. DEPAKINE [Concomitant]
     Active Substance: VALPROATE SODIUM
     Dosage: 4500 MG, 3X/DAY (TID); 14 CAPSULES AT 250MG EACH
  5. VERSED [Concomitant]
     Active Substance: MIDAZOLAM HYDROCHLORIDE
     Dosage: UNK, AS NEEDED (PRN)
  6. KEPPRA [Suspect]
     Active Substance: LEVETIRACETAM
     Indication: EPILEPSY
     Dosage: 1000 MG, 2X/DAY (BID)
     Dates: start: 2009
  7. ONFI [Concomitant]
     Active Substance: CLOBAZAM
     Dosage: 20 MG, 2X/DAY (BID)
  8. DIOSTAT [Concomitant]
     Dosage: UNK, AS NEEDED (PRN)
     Route: 054
  9. MULTIVITAMINS [Concomitant]
     Active Substance: VITAMINS
     Dosage: UNK, ONCE DAILY (QD)
  10. ATIVAN [Concomitant]
     Active Substance: LORAZEPAM
     Dosage: AS NEEDED (PRN)
  11. ZANTAC [Concomitant]
     Active Substance: RANITIDINE HYDROCHLORIDE
     Dosage: 15 MG, 2X/DAY (BID)
  12. DILANTIN [Concomitant]
     Active Substance: PHENYTOIN
     Dosage: 8.4 ML, 3X/DAY (TID)
  13. SIMETHICAONE [Concomitant]
     Dosage: 1.5 ML, 3X/DAY (TID)

REACTIONS (2)
  - Encephalopathy [Not Recovered/Not Resolved]
  - Brain neoplasm [Unknown]

NARRATIVE: CASE EVENT DATE: 2010
